FAERS Safety Report 23670488 (Version 2)
Quarter: 2024Q2

REPORT INFORMATION
  Report Type: Spontaneous
  Country: US (occurrence: US)
  Receive Date: 20240326
  Receipt Date: 20240418
  Transmission Date: 20240715
  Serious: No
  Sender: FDA-Public Use
  Company Number: US-JNJFOC-20240358904

PATIENT
  Age: 19 Year
  Sex: Male
  Weight: 128.8 kg

DRUGS (3)
  1. STELARA [Suspect]
     Active Substance: USTEKINUMAB
     Indication: Crohn^s disease
     Route: 040
     Dates: start: 20240319
  2. STELARA [Suspect]
     Active Substance: USTEKINUMAB
     Route: 040
  3. BUDESONIDE [Concomitant]
     Active Substance: BUDESONIDE
     Indication: Crohn^s disease
     Route: 065

REACTIONS (2)
  - Poor venous access [Unknown]
  - Underdose [Unknown]

NARRATIVE: CASE EVENT DATE: 20240319
